FAERS Safety Report 8994841 (Version 2)
Quarter: 2013Q1

REPORT INFORMATION
  Report Type: Spontaneous
  Country: US (occurrence: None)
  Receive Date: 20121221
  Receipt Date: 20121227
  Transmission Date: 20140127
  Serious: Yes (Hospitalization)
  Sender: FDA-Public Use
  Company Number: JPI-P-026855

PATIENT
  Age: 22 Year
  Sex: Male
  Weight: 95.26 kg

DRUGS (3)
  1. XYREM (500 MILLIGRAM/MILLILITERS, SOLUTION) (SODIUM OXYBATE) [Suspect]
     Indication: NARCOLEPSY
     Dosage: 4.5 GM (2.25 GM, 2 IN 1 D), ORAL
     Dates: start: 20090520, end: 2009
  2. ARIPIPRAZOLE [Suspect]
     Dates: start: 20120214, end: 20121031
  3. AMPHETAMINE, DEXTROAMPHETAMINE MIXED SALTS PSYCHOSTIMULANTS AND NOOTROPICS [Concomitant]

REACTIONS (17)
  - Psychotic disorder [None]
  - Paranoia [None]
  - Hallucination [None]
  - Agitation [None]
  - Anger [None]
  - Muscle spasms [None]
  - Therapeutic response decreased [None]
  - Initial insomnia [None]
  - Middle insomnia [None]
  - Akathisia [None]
  - Nervousness [None]
  - Anxiety [None]
  - Decreased appetite [None]
  - Disorientation [None]
  - Confusional state [None]
  - Aggression [None]
  - Abnormal behaviour [None]
